FAERS Safety Report 6931388-5 (Version None)
Quarter: 2010Q3

REPORT INFORMATION
  Report Type: 
  Country: None (occurrence: None)
  Receive Date: 20100819
  Receipt Date: 20100811
  Transmission Date: 20110219
  Serious: Yes (Life-Threatening, Other)
  Sender: FDA-Public Use
  Company Number: JP-JNJFOC-20100801446

PATIENT
  Sex: Male

DRUGS (5)
  1. RISPERDAL [Suspect]
     Indication: SCHIZOPHRENIA
     Route: 048
  2. EVAMYL [Suspect]
     Indication: SCHIZOPHRENIA
     Route: 048
  3. ALDACTONE [Suspect]
     Indication: DEHYDRATION
     Route: 048
  4. ZANTAC [Suspect]
     Indication: GASTRIC ULCER
     Route: 048
  5. URSO 250 [Suspect]
     Indication: HEPATITIS
     Route: 048

REACTIONS (7)
  - ANAEMIA [None]
  - ASCITES [None]
  - GASTRIC ULCER [None]
  - HYPOALBUMINAEMIA [None]
  - LIVER DISORDER [None]
  - MELAENA [None]
  - PLEURAL EFFUSION [None]
